FAERS Safety Report 6019429-3 (Version None)
Quarter: 2008Q4

REPORT INFORMATION
  Report Type: 
  Country: None (occurrence: None)
  Receive Date: 20081224
  Receipt Date: 20081217
  Transmission Date: 20090506
  Serious: Yes (Other)
  Sender: FDA-Public Use
  Company Number: BR-JNJFOC-20081205862

PATIENT
  Sex: Female
  Weight: 52 kg

DRUGS (3)
  1. IMOSEC [Suspect]
     Route: 048
  2. IMOSEC [Suspect]
     Indication: DIARRHOEA
     Route: 048
  3. BUSCOPAN [Concomitant]
     Indication: ABDOMINAL PAIN
     Route: 048

REACTIONS (1)
  - HYPERSENSITIVITY [None]
